FAERS Safety Report 21276690 (Version 1)
Quarter: 2022Q3

REPORT INFORMATION
  Report Type: Spontaneous
  Country: US (occurrence: US)
  Receive Date: 20220831
  Receipt Date: 20220831
  Transmission Date: 20221027
  Serious: No
  Sender: FDA-Public Use
  Company Number: US-ABBVIE-22K-163-4401155-00

PATIENT
  Age: 13 Year
  Sex: Male
  Weight: 43.130 kg

DRUGS (4)
  1. HUMIRA [Suspect]
     Active Substance: ADALIMUMAB
     Indication: Chronic recurrent multifocal osteomyelitis
     Route: 058
     Dates: start: 202102
  2. RELAFEN [Concomitant]
     Active Substance: NABUMETONE
     Indication: Bone pain
  3. RELAFEN [Concomitant]
     Active Substance: NABUMETONE
     Indication: Arthralgia
  4. OMEPRAZOLE [Concomitant]
     Active Substance: OMEPRAZOLE
     Indication: Abdominal discomfort
     Route: 048

REACTIONS (3)
  - C-reactive protein increased [Unknown]
  - Off label use [Unknown]
  - Sinusitis [Not Recovered/Not Resolved]

NARRATIVE: CASE EVENT DATE: 20220508
